FAERS Safety Report 11971618 (Version 3)
Quarter: 2017Q2

REPORT INFORMATION
  Report Type: Report from Study
  Country: US (occurrence: US)
  Receive Date: 20160128
  Receipt Date: 20170503
  Transmission Date: 20170829
  Serious: Yes (Hospitalization)
  Sender: FDA-Public Use
  Company Number: US-BAYER-2015-492480

PATIENT
  Age: 46 Year
  Sex: Female
  Weight: 120 kg

DRUGS (3)
  1. STIVARGA [Suspect]
     Active Substance: REGORAFENIB
     Indication: COLON CANCER
     Dosage: 120 MG, QD
     Route: 048
     Dates: start: 201511
  2. STIVARGA [Suspect]
     Active Substance: REGORAFENIB
     Indication: COLON CANCER
     Dosage: 120 MG, QD
     Route: 048
     Dates: start: 20160223
  3. STIVARGA [Suspect]
     Active Substance: REGORAFENIB
     Indication: COLON CANCER
     Dosage: 80 MG DAILY
     Route: 048
     Dates: start: 201510

REACTIONS (22)
  - Dyspepsia [None]
  - Pain in extremity [None]
  - Hypoglycaemia [Unknown]
  - Erythema [Unknown]
  - Parosmia [Unknown]
  - Peripheral swelling [Unknown]
  - Neuropathy peripheral [Not Recovered/Not Resolved]
  - Blister [None]
  - Somnolence [Unknown]
  - Erythema [Not Recovered/Not Resolved]
  - Dysphonia [Unknown]
  - Temperature intolerance [Unknown]
  - Nausea [Unknown]
  - Palmar-plantar erythrodysaesthesia syndrome [Not Recovered/Not Resolved]
  - Dysphonia [None]
  - Burning sensation [Not Recovered/Not Resolved]
  - Joint swelling [None]
  - Palmar-plantar erythrodysaesthesia syndrome [Unknown]
  - Nausea [None]
  - Acne [Unknown]
  - Diarrhoea [Unknown]
  - Skin exfoliation [Not Recovered/Not Resolved]

NARRATIVE: CASE EVENT DATE: 201511
